FAERS Safety Report 4722833-4 (Version None)
Quarter: 2005Q3

REPORT INFORMATION
  Report Type: 
  Country: None (occurrence: None)
  Receive Date: 20050722
  Receipt Date: 20050720
  Transmission Date: 20060218
  Serious: Yes (Other)
  Sender: FDA-Public Use
  Company Number: US-GLAXOSMITHKLINE-A0567027A

PATIENT
  Age: 63 Year
  Sex: Male

DRUGS (13)
  1. COREG [Suspect]
     Route: 048
  2. ZOCOR [Suspect]
  3. LASIX [Concomitant]
  4. NOVOLOG [Concomitant]
  5. LANTUS [Concomitant]
  6. ALBUTEROL [Concomitant]
  7. GLIPIZIDE [Concomitant]
  8. FLONASE [Concomitant]
  9. ASPIRIN [Concomitant]
  10. DIGOXIN [Concomitant]
  11. LISINOPRIL [Concomitant]
  12. BRIMONIDINE TARTRATE [Concomitant]
  13. TERAZOSIN HCL [Concomitant]

REACTIONS (7)
  - FALL [None]
  - FLUID RETENTION [None]
  - LOSS OF CONSCIOUSNESS [None]
  - OEDEMA [None]
  - STOOL ANALYSIS ABNORMAL [None]
  - SYNCOPE [None]
  - WEIGHT INCREASED [None]
